FAERS Safety Report 6843492-0 (Version None)
Quarter: 2010Q3

REPORT INFORMATION
  Report Type: 
  Country: None (occurrence: None)
  Receive Date: 20100715
  Receipt Date: 20100709
  Transmission Date: 20110219
  Serious: Yes (Hospitalization)
  Sender: FDA-Public Use
  Company Number: AU-BAYER-201010003GPV

PATIENT
  Age: 32 Year
  Sex: Female
  Weight: 70 kg

DRUGS (4)
  1. BETAFERON [Suspect]
     Indication: PRODUCT USED FOR UNKNOWN INDICATION
     Dates: start: 20080528, end: 20091227
  2. LEVELEN-ED [Concomitant]
     Indication: CONTRACEPTION
     Dates: start: 20071115
  3. PANADOL [Concomitant]
     Indication: INFLUENZA LIKE ILLNESS
     Dates: start: 20080415, end: 20090501
  4. AMOXICILLIN [Concomitant]
     Indication: OTITIS MEDIA
     Dates: start: 20090417, end: 20090422

REACTIONS (4)
  - HEPATIC FAILURE [None]
  - JAUNDICE [None]
  - NAUSEA [None]
  - VOMITING [None]
